FAERS Safety Report 6935867-6 (Version None)
Quarter: 2010Q3

REPORT INFORMATION
  Report Type: 
  Country: None (occurrence: None)
  Receive Date: 20100823
  Receipt Date: 20100812
  Transmission Date: 20110219
  Serious: Yes (Hospitalization)
  Sender: FDA-Public Use
  Company Number: CA-ASTRAZENECA-2010SE38168

PATIENT
  Sex: Female

DRUGS (4)
  1. IRESSA [Suspect]
     Route: 048
  2. DOXYCYCLINE [Concomitant]
     Indication: EYE DISORDER
  3. LIPITOR [Concomitant]
  4. ZOMETA [Concomitant]
     Indication: METASTASES TO BONE
     Dosage: MONTHLY

REACTIONS (3)
  - DIARRHOEA [None]
  - RASH GENERALISED [None]
  - SKIN EXFOLIATION [None]
